FAERS Safety Report 24907642 (Version 1)
Quarter: 2025Q1

REPORT INFORMATION
  Report Type: Report from Study
  Country: CA (occurrence: CA)
  Receive Date: 20250131
  Receipt Date: 20250131
  Transmission Date: 20250409
  Serious: Yes (Other)
  Sender: ABBVIE
  Company Number: CA-ABBVIE-6107086

PATIENT
  Age: 27 Year
  Sex: Male

DRUGS (1)
  1. RINVOQ [Suspect]
     Active Substance: UPADACITINIB
     Indication: Crohn^s disease
     Route: 048
     Dates: start: 20220917

REACTIONS (4)
  - Colostomy [Unknown]
  - Colectomy [Unknown]
  - Anal fissure [Unknown]
  - Fistula [Unknown]

NARRATIVE: CASE EVENT DATE: 20240809
